FAERS Safety Report 8535062-3 (Version None)
Quarter: 2012Q3

REPORT INFORMATION
  Report Type: 
  Country: None (occurrence: None)
  Receive Date: 20120724
  Receipt Date: 20120717
  Transmission Date: 20120928
  Serious: Yes (Death, Hospitalization)
  Sender: FDA-Public Use
  Company Number: FR-PFIZER INC-2012114021

PATIENT
  Age: 80 Year
  Sex: Female

DRUGS (10)
  1. INNOHEP [Suspect]
     Dosage: 1 DF, 1X/DAY
     Route: 058
     Dates: end: 20120406
  2. EXFORGE [Concomitant]
     Indication: HYPERTENSION
     Dosage: 1 DF, 1X/DAY
     Route: 048
     Dates: end: 20120406
  3. XANAX [Concomitant]
     Indication: DEPRESSION
     Dosage: 0.25 MG, 1X/DAY
     Route: 048
     Dates: end: 20120406
  4. ATHYMIL [Concomitant]
     Indication: DEPRESSION
     Dosage: 10 MG, 1X/DAY
     Route: 048
     Dates: end: 20120406
  5. DURAGESIC-100 [Concomitant]
     Indication: METASTATIC PAIN
     Dosage: 1 DF/72 H
     Route: 003
     Dates: start: 20120402
  6. MORPHINE SULFATE [Concomitant]
     Indication: METASTATIC PAIN
     Dosage: 1 DF 6X/DAY
     Route: 048
     Dates: start: 20120301, end: 20120406
  7. NEXIUM [Concomitant]
     Dosage: 40 MG, 1X/DAY
     Route: 048
     Dates: end: 20120406
  8. SUTENT [Suspect]
     Indication: METASTATIC RENAL CELL CARCINOMA
     Dosage: 25 MG, 1X/DAY
     Route: 048
     Dates: end: 20120406
  9. IMOVANE [Concomitant]
     Indication: DEPRESSION
     Dosage: 7.5 MG, 1X/DAY
     Route: 048
     Dates: end: 20120406
  10. FERROUS SULFATE TAB [Concomitant]
     Dosage: 80 MG, 2X/DAY
     Route: 048
     Dates: end: 20120406

REACTIONS (4)
  - RESPIRATORY DISTRESS [None]
  - DEPRESSED LEVEL OF CONSCIOUSNESS [None]
  - COMA [None]
  - CEREBRAL HAEMORRHAGE [None]
